FAERS Safety Report 4274666-3 (Version None)
Quarter: 2004Q1

REPORT INFORMATION
  Report Type: 
  Country: None (occurrence: None)
  Receive Date: 20040120
  Receipt Date: 20040120
  Transmission Date: 20041129
  Serious: No
  Sender: FDA-Public Use
  Company Number: None

PATIENT
  Age: 62 Year
  Sex: Female
  Weight: 77.1115 kg

DRUGS (1)
  1. THYROID TAB [Suspect]
     Indication: WEIGHT DECREASED
     Dosage: ONE TAB ORAL
     Route: 048
     Dates: start: 20040101, end: 20040112

REACTIONS (3)
  - ANXIETY [None]
  - BLOOD PRESSURE INCREASED [None]
  - PALPITATIONS [None]
